FAERS Safety Report 21264290 (Version 1)
Quarter: 2022Q3

REPORT INFORMATION
  Report Type: Other
  Country: JP (occurrence: None)
  Receive Date: 20220829
  Receipt Date: 20220829
  Transmission Date: 20221026
  Serious: Yes (Death, Other)
  Sender: FDA-Public Use
  Company Number: JP-ROCHE-3168463

PATIENT
  Age: 69 Year
  Sex: Female

DRUGS (7)
  1. CARVEDILOL [Suspect]
     Active Substance: CARVEDILOL
     Indication: Cardiomyopathy
     Route: 065
  2. BEVACIZUMAB [Suspect]
     Active Substance: BEVACIZUMAB
     Indication: Cervix carcinoma
     Dosage: IN 1 WEEK FOR 4 MONTHS
     Route: 065
  3. DAPAGLIFLOZIN [Concomitant]
     Active Substance: DAPAGLIFLOZIN
  4. CANDESARTAN [Concomitant]
     Active Substance: CANDESARTAN
  5. EPLERENONE [Concomitant]
     Active Substance: EPLERENONE
  6. IVABRADINE [Concomitant]
     Active Substance: IVABRADINE
  7. PACLITAXEL [Concomitant]
     Active Substance: PACLITAXEL
     Dosage: IN 1 WEEK, FOR 4 MONTH

REACTIONS (4)
  - Cardiotoxicity [Unknown]
  - Disease progression [Fatal]
  - Left ventricular enlargement [Unknown]
  - Drug ineffective [Unknown]
